FAERS Safety Report 14946198 (Version 1)
Quarter: 2018Q2

REPORT INFORMATION
  Report Type: Spontaneous
  Country: US (occurrence: US)
  Receive Date: 20180508
  Receipt Date: 20180508
  Transmission Date: 20180711
  Serious: Yes (Other)
  Sender: FDA-Public Use
  Company Number: None

PATIENT
  Sex: Female

DRUGS (8)
  1. OCYCODONE/APAP [Concomitant]
  2. ANASTROZOLE. [Concomitant]
     Active Substance: ANASTROZOLE
  3. TASIGNA [Suspect]
     Active Substance: NILOTINIB
     Indication: MYELOID LEUKAEMIA
     Route: 048
     Dates: start: 20090321
  4. METOPROLOL. [Concomitant]
     Active Substance: METOPROLOL
  5. SSD CREAM 1% [Concomitant]
  6. DOK [Concomitant]
     Active Substance: DOCUSATE SODIUM
  7. ATENOLOL. [Concomitant]
     Active Substance: ATENOLOL
  8. TASIGNA [Suspect]
     Active Substance: NILOTINIB
     Indication: BREAST CANCER
     Route: 048
     Dates: start: 20090321

REACTIONS (1)
  - Breast cancer [None]
